FAERS Safety Report 25068491 (Version 1)
Quarter: 2025Q1

REPORT INFORMATION
  Report Type: Report from Study
  Country: US (occurrence: US)
  Receive Date: 20250312
  Receipt Date: 20250312
  Transmission Date: 20250408
  Serious: Yes (Hospitalization, Other)
  Sender: NOVARTIS
  Company Number: US-002147023-NVSC2024US219932

PATIENT
  Sex: Female

DRUGS (1)
  1. ENTRESTO [Suspect]
     Active Substance: SACUBITRIL\VALSARTAN
     Indication: Product used for unknown indication
     Dosage: 97 MG, BID
     Route: 048
     Dates: start: 20240819

REACTIONS (7)
  - Cardiac failure chronic [Unknown]
  - Dyspnoea [Unknown]
  - Myocardial infarction [Unknown]
  - Chronic kidney disease [Unknown]
  - Memory impairment [Unknown]
  - Hypertension [Unknown]
  - Urinary tract infection [Unknown]
